FAERS Safety Report 22138403 (Version 1)
Quarter: 2023Q1

REPORT INFORMATION
  Report Type: Spontaneous
  Country: NL (occurrence: NL)
  Receive Date: 20230326
  Receipt Date: 20230326
  Transmission Date: 20230418
  Serious: Yes (Death)
  Sender: FDA-Public Use
  Company Number: None

PATIENT
  Sex: Female
  Weight: 75 kg

DRUGS (4)
  1. NAPROXEN [Suspect]
     Active Substance: NAPROXEN
     Indication: Arthralgia
     Dosage: 500 MILLIGRAM DAILY;  MSR, BRAND NAME NOT SPECIFIED
     Route: 065
     Dates: start: 20220921
  2. PREGABALIN [Concomitant]
     Active Substance: PREGABALIN
     Indication: Product used for unknown indication
     Dosage: BRAND NAME NOT SPECIFIED
     Route: 065
  3. CALCIUM CARBONATE\CHOLECALCIFEROL [Concomitant]
     Active Substance: CALCIUM CARBONATE\CHOLECALCIFEROL
     Indication: Product used for unknown indication
     Dosage: 1.25/800IE, 2.5G/880IE (1000MG CA) / ORANGE EFFERVESCENT GRANULES 1000MG/880IE IN SACHET
     Route: 065
  4. OMEPRAZOLE CF [Concomitant]
     Indication: Product used for unknown indication
     Dosage: ANTACID
     Route: 065

REACTIONS (1)
  - Gastrointestinal haemorrhage [Fatal]
